FAERS Safety Report 8211133-6 (Version None)
Quarter: 2012Q1

REPORT INFORMATION
  Report Type: 
  Country: None (occurrence: None)
  Receive Date: 20120315
  Receipt Date: 20120306
  Transmission Date: 20120608
  Serious: Yes (Other)
  Sender: FDA-Public Use
  Company Number: US-SHIRE-ALL1-2012-01295

PATIENT
  Sex: Female
  Weight: 56.689 kg

DRUGS (2)
  1. VYVANSE [Suspect]
     Indication: DISTURBANCE IN ATTENTION
     Dosage: 20 MG, 1X/DAY:QD
     Route: 048
     Dates: start: 20120201, end: 20120201
  2. VYVANSE [Suspect]
     Indication: FATIGUE

REACTIONS (5)
  - INCREASED APPETITE [None]
  - MOOD ALTERED [None]
  - THINKING ABNORMAL [None]
  - ASTHENIA [None]
  - DEPRESSED MOOD [None]
